FAERS Safety Report 7222955-2 (Version None)
Quarter: 2011Q1

REPORT INFORMATION
  Report Type: 
  Country: None (occurrence: None)
  Receive Date: 20110112
  Receipt Date: 20101217
  Transmission Date: 20110831
  Serious: Yes (Hospitalization)
  Sender: FDA-Public Use
  Company Number: DE-PFIZER INC-DE-WYE-G05756510

PATIENT
  Age: 70 Year
  Sex: Female

DRUGS (96)
  1. DIPIDOLOR [Suspect]
     Dosage: 3.0 MG, 3X/DAY
     Route: 042
     Dates: start: 20070830, end: 20070905
  2. ACETYLCYSTEINE [Suspect]
     Dosage: 600.0 MG, 2X/DAY
     Route: 042
     Dates: start: 20070829, end: 20070829
  3. NOVALGIN [Suspect]
     Dosage: 30.0 GTT, 1X/DAY
     Route: 048
     Dates: start: 20070923, end: 20070925
  4. RIFAMPICIN [Suspect]
     Indication: PSOAS ABSCESS
     Dosage: 600.0 MG, 1X/DAY
     Route: 042
     Dates: start: 20070901, end: 20070916
  5. DIOVAN [Suspect]
     Indication: HYPERTENSION
     Dosage: 80.0 MG, 1X/DAY
     Route: 048
     Dates: start: 20070907, end: 20070912
  6. TPN ELECTROLYTES IN PLASTIC CONTAINER [Concomitant]
     Dosage: UNK
     Route: 042
     Dates: start: 20070903, end: 20070905
  7. CLINDAMYCIN [Concomitant]
     Dosage: UNK
     Route: 048
     Dates: start: 20070920
  8. JONOSTERIL [Concomitant]
     Dosage: UNK
     Route: 042
     Dates: start: 20070914, end: 20070916
  9. PERFALGAN [Concomitant]
     Dosage: UNK
     Route: 042
     Dates: start: 20070828, end: 20070828
  10. POTASSIUM CHLORIDE [Concomitant]
     Dosage: UNK
     Route: 048
     Dates: start: 20070912, end: 20070920
  11. SOLU-DECORTIN-H [Concomitant]
     Dosage: UNK
     Route: 042
     Dates: start: 20070920, end: 20070920
  12. SODIUM CHLORIDE [Concomitant]
  13. SUFENTANIL CITRATE [Concomitant]
     Dosage: UNK
     Route: 042
     Dates: start: 20070829, end: 20070829
  14. PANTOZOL [Suspect]
     Dosage: 20.0 UNK, 2X/DAY
     Route: 048
     Dates: start: 20070905
  15. ALDACTONE [Suspect]
     Indication: HYPERTENSION
     Dosage: 100.0 MG, 1X/DAY
     Route: 065
     Dates: start: 20070903, end: 20070903
  16. BERODUAL [Suspect]
     Indication: OBSTRUCTIVE AIRWAYS DISORDER
     Dosage: 2.0 DF, 2X/DAY
     Route: 055
     Dates: start: 20070906
  17. CLEXANE [Suspect]
     Indication: THROMBOSIS PROPHYLAXIS
     Dosage: UNK
     Route: 058
     Dates: start: 20070908
  18. ACETAMINOPHEN [Suspect]
     Indication: PYREXIA
     Dosage: UNK
     Route: 048
     Dates: start: 20070912, end: 20070916
  19. LASIX [Concomitant]
     Dosage: UNK
     Route: 065
     Dates: start: 20070828, end: 20070905
  20. HALDOL [Concomitant]
     Dosage: UNK
     Route: 042
     Dates: start: 20070828, end: 20070828
  21. JONOSTERIL [Concomitant]
     Dosage: UNK
     Route: 042
     Dates: start: 20070920, end: 20070921
  22. BELOC [Concomitant]
     Dosage: UNK
     Route: 042
     Dates: start: 20070828, end: 20070828
  23. BELOC [Concomitant]
     Dosage: UNK
     Route: 042
     Dates: start: 20070830, end: 20070901
  24. ARTERENOL [Concomitant]
     Dosage: UNK
     Route: 042
     Dates: start: 20070828, end: 20070831
  25. TAVOR [Suspect]
     Indication: RESTLESSNESS
     Dosage: 1.0 MG, 1X/DAY
     Route: 048
     Dates: start: 20070907, end: 20070914
  26. PANTOZOL [Suspect]
     Dosage: 40.0 MG, 1X/DAY
     Route: 042
     Dates: start: 20070828, end: 20070901
  27. ROCEPHIN [Suspect]
     Indication: PSOAS ABSCESS
     Dosage: 2.0 G, 2X/DAY
     Route: 042
     Dates: start: 20070828, end: 20070831
  28. MUCOSOLVAN [Suspect]
     Dosage: UNK
     Route: 042
     Dates: start: 20070907, end: 20070912
  29. ADALAT [Suspect]
     Indication: HYPERTENSION
     Dosage: UNK
     Route: 048
     Dates: start: 20070911, end: 20070914
  30. FENISTIL [Concomitant]
     Dosage: UNK
     Route: 048
     Dates: start: 20070919
  31. HETASTARCH [Concomitant]
     Dosage: UNK
     Route: 042
     Dates: start: 20070907, end: 20070913
  32. JONOSTERIL [Concomitant]
     Dosage: UNK
     Route: 042
     Dates: start: 20070906, end: 20070911
  33. MAGNETRANS [Concomitant]
     Dosage: UNK
     Route: 048
     Dates: start: 20070911, end: 20070911
  34. MULTIBIONTA [Concomitant]
     Dosage: UNK
     Route: 042
     Dates: start: 20070902, end: 20070902
  35. PROPOFOL [Concomitant]
     Dosage: UNK
     Route: 042
     Dates: start: 20070828, end: 20070831
  36. DIPIDOLOR [Suspect]
     Dosage: 2.0 MG, 4X/DAY
     Route: 042
     Dates: start: 20070908, end: 20070909
  37. CATAPRESAN [Suspect]
     Indication: HYPERTENSION
     Dosage: UNK
     Route: 042
     Dates: start: 20070830, end: 20070831
  38. MUCOSOLVAN [Suspect]
     Dosage: 15.0 MG, 3X/DAY
     Route: 048
     Dates: start: 20070913
  39. AMINO ACIDS NOS [Concomitant]
     Dosage: UNK
     Route: 042
     Dates: start: 20070828, end: 20070828
  40. CLINDAMYCIN HCL [Concomitant]
     Dosage: UNK
     Route: 042
     Dates: start: 20070828, end: 20070828
  41. GLYCERYL TRINITRATE [Concomitant]
     Dosage: UNK
     Route: 055
     Dates: start: 20070917, end: 20070917
  42. INZOLEN [Concomitant]
     Dosage: UNK
     Route: 042
     Dates: start: 20070912, end: 20070914
  43. NEOSTIGMINE [Concomitant]
     Dosage: UNK
     Route: 042
     Dates: start: 20070829, end: 20070901
  44. DOLANTIN [Concomitant]
     Dosage: UNK
     Route: 042
     Dates: start: 20070902, end: 20070902
  45. NORVASC [Suspect]
     Dosage: 10.0 MG, 1X/DAY
     Route: 048
     Dates: start: 20070902
  46. TAVOR [Suspect]
     Dosage: 1.0 MG, 1X/DAY
     Route: 048
     Dates: start: 20070920, end: 20070920
  47. HYDROCORTISONE SODIUM SUCCINATE [Suspect]
     Dosage: UNK
     Route: 042
     Dates: start: 20070907, end: 20070914
  48. ACETYLCYSTEINE [Suspect]
     Dosage: 300.0 MG, 2X/DAY
     Route: 048
     Dates: start: 20070905, end: 20070918
  49. CATAPRESAN [Suspect]
     Dosage: 150.0 MG, 3X/DAY
     Route: 048
     Dates: start: 20070912
  50. BELOC ZOK [Suspect]
     Indication: HYPERTENSION
     Dosage: 1.0 DF, 2X/DAY
     Route: 048
     Dates: start: 20070902
  51. TRAMAL [Suspect]
     Indication: PAIN
     Dosage: 20.0 GTT, 2X/DAY
     Route: 048
     Dates: start: 20070908, end: 20070909
  52. AVELOX [Suspect]
     Indication: PSOAS ABSCESS
     Dosage: 400.0 MG, 1X/DAY
     Route: 048
     Dates: start: 20070916, end: 20070919
  53. TPN ELECTROLYTES IN PLASTIC CONTAINER [Concomitant]
     Dosage: UNK
     Route: 042
     Dates: start: 20070829, end: 20070831
  54. CLINDAMYCIN [Concomitant]
     Dosage: UNK
     Route: 042
     Dates: start: 20070828, end: 20070831
  55. CYANOCOBALAMIN [Concomitant]
     Dosage: UNK
     Route: 042
     Dates: start: 20090902, end: 20090902
  56. HEPARIN [Concomitant]
     Dosage: UNK
     Route: 042
     Dates: start: 20070828, end: 20070828
  57. HETASTARCH [Concomitant]
     Dosage: UNK
     Route: 042
     Dates: start: 20070828, end: 20070829
  58. INSUMAN [Concomitant]
     Dosage: UNK
     Route: 042
     Dates: start: 20070828, end: 20070828
  59. JONOSTERIL [Concomitant]
     Dosage: UNK
     Route: 042
     Dates: start: 20070828, end: 20070903
  60. METOCLOPRAMIDE [Concomitant]
     Dosage: UNK
     Route: 042
     Dates: start: 20070828, end: 20070901
  61. PHYTOMENADIONE [Concomitant]
     Dosage: UNK
     Route: 042
     Dates: start: 20070902, end: 20070902
  62. VITAMIN B [Concomitant]
     Dosage: UNK
     Route: 042
     Dates: start: 20070911, end: 20070911
  63. TAVOR [Suspect]
     Dosage: 1.0 MG, 1X/DAY
     Route: 048
     Dates: start: 20070918, end: 20070918
  64. DIPIDOLOR [Suspect]
     Indication: PAIN
     Dosage: 2.0 MG, 3X/DAY
     Route: 042
     Dates: start: 20070828, end: 20070828
  65. NOVALGIN [Suspect]
     Indication: PAIN
     Dosage: 1.0 G, 3X/DAY
     Route: 065
     Dates: start: 20070829, end: 20070914
  66. INSULIN [Suspect]
     Indication: HYPERGLYCAEMIA
     Dosage: UNK
     Route: 058
     Dates: start: 20070905, end: 20070914
  67. SAROTEN [Suspect]
     Indication: PAIN
     Dosage: 75.0 MG, 1X/DAY
     Route: 048
     Dates: start: 20070907, end: 20070914
  68. TRAMAL [Suspect]
     Dosage: 20.0 GTT, 3X/DAY
     Route: 048
     Dates: start: 20070912, end: 20070913
  69. ACTRAPID MC [Concomitant]
     Dosage: UNK
     Route: 042
     Dates: start: 20070829, end: 20070905
  70. PERFALGAN [Concomitant]
     Dosage: UNK
     Route: 042
     Dates: start: 20070924, end: 20070924
  71. KALINOR [Concomitant]
     Dosage: UNK
     Route: 042
     Dates: start: 20070828, end: 20070913
  72. POTASSIUM CHLORIDE [Concomitant]
     Dosage: UNK
     Route: 042
     Dates: start: 20070828, end: 20070913
  73. SOLU-DECORTIN-H [Concomitant]
     Dosage: UNK
     Route: 042
     Dates: start: 20070906, end: 20070906
  74. PERENTEROL [Concomitant]
     Dosage: UNK
     Route: 048
     Dates: start: 20070916, end: 20070919
  75. TAVOR [Suspect]
     Dosage: 1.0 MG, 1X/DAY
     Route: 048
     Dates: start: 20070922, end: 20070922
  76. PIPERACILLIN [Suspect]
     Indication: PSOAS ABSCESS
     Dosage: 4.0 G, 2X/DAY
     Route: 042
     Dates: start: 20070828, end: 20070828
  77. DICLAC [Suspect]
     Indication: PAIN
     Dosage: 75.0 MG, 2X/DAY
     Route: 048
     Dates: start: 20070908, end: 20070912
  78. FOLIC ACID [Concomitant]
     Dosage: UNK
     Route: 042
     Dates: start: 20070902, end: 20070902
  79. EMBOLEX [Concomitant]
     Dosage: UNK
     Route: 058
     Dates: start: 20070830, end: 20070907
  80. EUGALAC [Concomitant]
     Dosage: UNK
     Route: 048
     Dates: start: 20070904, end: 20070905
  81. POTASSIUM CITRATE [Concomitant]
     Dosage: UNK
     Route: 042
     Dates: start: 20070902, end: 20070903
  82. PREDNISOLONE [Concomitant]
     Dosage: UNK
     Route: 048
     Dates: start: 20070921, end: 20070924
  83. HYDROCORTISONE SODIUM SUCCINATE [Suspect]
     Dosage: UNK
     Route: 042
     Dates: start: 20070829, end: 20070901
  84. COMBACTAM [Suspect]
     Indication: PSOAS ABSCESS
     Dosage: 1.0 G, 2X/DAY
     Route: 042
     Dates: start: 20070828, end: 20070828
  85. ACETYLCYSTEINE [Suspect]
     Dosage: 300.0 MG, 3X/DAY
     Route: 048
     Dates: start: 20070828, end: 20070828
  86. STAPHYLEX [Suspect]
     Indication: PSOAS ABSCESS
     Dosage: 2.0 G, 3X/DAY
     Route: 042
     Dates: start: 20070831, end: 20070916
  87. HYDROCHLOROTHIAZIDE [Suspect]
     Indication: POLYURIA
     Dosage: 25.0 MG, 1X/DAY
     Route: 048
     Dates: start: 20070907, end: 20070911
  88. LEVOTHYROXINE SODIUM [Suspect]
     Indication: HYPOTHYROIDISM
     Dosage: 75.0 UG, 1X/DAY
     Route: 048
     Dates: start: 20070910
  89. DIAZEPAM [Concomitant]
     Dosage: UNK
     Route: 042
     Dates: start: 20070828, end: 20070828
  90. FENISTIL [Concomitant]
     Dosage: UNK
     Route: 042
     Dates: start: 20070908, end: 20070908
  91. INSULIN GLARGINE [Concomitant]
     Dosage: UNK
     Route: 058
     Dates: start: 20070902, end: 20070902
  92. MORONAL [Concomitant]
     Dosage: UNK
     Route: 065
     Dates: start: 20070914, end: 20070918
  93. PERFALGAN [Concomitant]
     Dosage: UNK
     Route: 042
     Dates: start: 20070902, end: 20070903
  94. PERFALGAN [Concomitant]
     Dosage: UNK
     Route: 042
     Dates: start: 20070922, end: 20070922
  95. KALINOR [Concomitant]
     Dosage: UNK
     Route: 048
     Dates: start: 20070912, end: 20070920
  96. EBRANTIL [Concomitant]
     Dosage: UNK
     Route: 042
     Dates: start: 20070831, end: 20070901

REACTIONS (1)
  - STEVENS-JOHNSON SYNDROME [None]
